FAERS Safety Report 4740783-4 (Version None)
Quarter: 2005Q3

REPORT INFORMATION
  Report Type: 
  Country: None (occurrence: None)
  Receive Date: 20050810
  Receipt Date: 20050623
  Transmission Date: 20060218
  Serious: Yes (Other)
  Sender: FDA-Public Use
  Company Number: CA-SANOFI-SYNTHELABO-F01200501473

PATIENT

DRUGS (2)
  1. ELOXATIN [Suspect]
     Dosage: DOSE NOT PROVIDED
  2. INSULIN [Concomitant]
     Indication: DIABETES MELLITUS
     Dosage: DOSE NOT SPECIFIED
     Route: 058

REACTIONS (1)
  - BLINDNESS TRANSIENT [None]
